FAERS Safety Report 7238247-1 (Version None)
Quarter: 2011Q1

REPORT INFORMATION
  Report Type: 
  Country: None (occurrence: None)
  Receive Date: 20110121
  Receipt Date: 20110118
  Transmission Date: 20110831
  Serious: Yes (Other)
  Sender: FDA-Public Use
  Company Number: US-PFIZER INC-2011011977

PATIENT
  Sex: Female

DRUGS (1)
  1. PHENYTOIN [Suspect]

REACTIONS (1)
  - CONVULSION [None]
